FAERS Safety Report 7539824-0 (Version None)
Quarter: 2011Q2

REPORT INFORMATION
  Report Type: 
  Country: None (occurrence: None)
  Receive Date: 20110610
  Receipt Date: 20110526
  Transmission Date: 20111010
  Serious: No
  Sender: FDA-Public Use
  Company Number: US-B.I. PHARMACEUTICALS,INC./RIDGEFIELD-2011-BP-14107BP

PATIENT
  Age: 88 Year
  Sex: Male

DRUGS (8)
  1. TAMSULOSIN GRANULE [Concomitant]
  2. OMEPRAZOLE [Concomitant]
  3. PROZAC [Concomitant]
  4. SIMVASTATIN [Concomitant]
  5. MEDICATION NOT FURTHER SPECIFIED [Concomitant]
     Indication: GLAUCOMA
  6. SEROQUEL [Concomitant]
  7. PRADAXA [Suspect]
     Indication: ATRIAL FIBRILLATION
     Dosage: 300 MG
     Route: 048
     Dates: start: 20110505
  8. METOPROLOL SUCCINATE [Concomitant]

REACTIONS (1)
  - URINE OUTPUT DECREASED [None]
